FAERS Safety Report 5484387-7 (Version None)
Quarter: 2007Q4

REPORT INFORMATION
  Report Type: 
  Country: None (occurrence: None)
  Receive Date: 20071012
  Receipt Date: 20071010
  Transmission Date: 20080405
  Serious: Yes (Other)
  Sender: FDA-Public Use
  Company Number: NL-MERCK-0710NLD00034

PATIENT
  Age: 64 Year
  Sex: Female

DRUGS (4)
  1. VYTORIN [Suspect]
     Indication: HYPERCHOLESTEROLAEMIA
     Route: 048
  2. ROSIGLITAZONE MALEATE [Suspect]
     Indication: DIABETES MELLITUS
     Route: 048
  3. LEVOTHYROXINE SODIUM [Concomitant]
     Route: 065
     Dates: start: 19900924
  4. GLICLAZIDE [Concomitant]
     Route: 048

REACTIONS (3)
  - ARTERIOSCLEROSIS [None]
  - JOINT SWELLING [None]
  - OEDEMA PERIPHERAL [None]
